FAERS Safety Report 4839320-5 (Version None)
Quarter: 2005Q4

REPORT INFORMATION
  Report Type: 
  Country: None (occurrence: None)
  Receive Date: 20051129
  Receipt Date: 20041230
  Transmission Date: 20060501
  Serious: No
  Sender: FDA-Public Use
  Company Number: US-GLAXOSMITHKLINE-A0538852A

PATIENT
  Age: 44 Year
  Sex: Male

DRUGS (4)
  1. WELLBUTRIN SR [Suspect]
     Dosage: 100MG TWICE PER DAY
     Route: 048
     Dates: start: 20041216
  2. TEMAZEPAM [Concomitant]
  3. MULTI-VITAMINS [Concomitant]
  4. CALCIUM GLUCONATE [Concomitant]

REACTIONS (1)
  - DIZZINESS [None]
